FAERS Safety Report 5784437-4 (Version None)
Quarter: 2008Q2

REPORT INFORMATION
  Report Type: 
  Country: None (occurrence: None)
  Receive Date: 20080605
  Receipt Date: 20080407
  Transmission Date: 20081010
  Serious: No
  Sender: FDA-Public Use
  Company Number: A0721288A

PATIENT
  Age: 51 Year
  Sex: Female

DRUGS (4)
  1. ALLI [Suspect]
     Dates: start: 20080327
  2. VITAMIN B [Concomitant]
  3. VITAMIN E [Concomitant]
  4. WHEAT GERM [Concomitant]

REACTIONS (1)
  - CHROMATURIA [None]
